FAERS Safety Report 23064403 (Version 2)
Quarter: 2024Q1

REPORT INFORMATION
  Report Type: Report from Study
  Country: US (occurrence: US)
  Receive Date: 20231013
  Receipt Date: 20240313
  Transmission Date: 20240410
  Serious: Yes (Hospitalization)
  Sender: FDA-Public Use
  Company Number: US-JNJFOC-20231030961

PATIENT
  Age: 86 Year
  Sex: Male

DRUGS (9)
  1. ERLEADA [Suspect]
     Active Substance: APALUTAMIDE
     Indication: Product used for unknown indication
     Route: 048
  2. METOPROLOL [Concomitant]
     Active Substance: METOPROLOL
     Route: 050
  3. SPIRONOLACTONE [Concomitant]
     Active Substance: SPIRONOLACTONE
     Route: 050
     Dates: start: 202305
  4. LOSARTAN [Concomitant]
     Active Substance: LOSARTAN
     Route: 050
     Dates: start: 202305
  5. AMIODARONE [Concomitant]
     Active Substance: AMIODARONE
     Route: 050
     Dates: start: 202305
  6. OMEPRAZOLE [Concomitant]
     Active Substance: OMEPRAZOLE
     Route: 050
     Dates: start: 202305
  7. JARDIANCE [Concomitant]
     Active Substance: EMPAGLIFLOZIN
     Route: 050
     Dates: start: 202305
  8. WARFARIN [Concomitant]
     Active Substance: WARFARIN
     Route: 050
     Dates: start: 202303
  9. BUSPIRONE [Concomitant]
     Active Substance: BUSPIRONE HYDROCHLORIDE
     Route: 050
     Dates: start: 202302

REACTIONS (3)
  - Cardiac operation [Recovering/Resolving]
  - Pain [Unknown]
  - Infection [Unknown]
